FAERS Safety Report 15094050 (Version 1)
Quarter: 2018Q2

REPORT INFORMATION
  Report Type: Spontaneous
  Country: FR (occurrence: FR)
  Receive Date: 20180629
  Receipt Date: 20180629
  Transmission Date: 20180711
  Serious: Yes (Hospitalization)
  Sender: FDA-Public Use
  Company Number: FR-B. BRAUN MEDICAL INC.-2051141

PATIENT
  Age: 75 Year
  Sex: Male

DRUGS (3)
  1. DIAMOX SEQUELS [Suspect]
     Active Substance: ACETAZOLAMIDE
     Route: 048
     Dates: start: 20180218, end: 20180218
  2. 20% MANNITOL INJECTION USP 0264-7578-10 0264-7578-20 [Suspect]
     Active Substance: MANNITOL
     Indication: GLAUCOMA
     Route: 041
     Dates: start: 20180218, end: 20180218
  3. ZELITREX [Suspect]
     Active Substance: VALACYCLOVIR HYDROCHLORIDE
     Route: 048
     Dates: start: 20180218, end: 20180218

REACTIONS (3)
  - Confusional state [Recovered/Resolved]
  - Delirium [Recovered/Resolved]
  - Hallucination, visual [Recovered/Resolved]

NARRATIVE: CASE EVENT DATE: 20180219
